FAERS Safety Report 4481659-X (Version None)
Quarter: 2004Q4

REPORT INFORMATION
  Report Type: 
  Country: None (occurrence: None)
  Receive Date: 20041021
  Receipt Date: 20041012
  Transmission Date: 20050328
  Serious: Yes (Hospitalization, Disabling)
  Sender: FDA-Public Use
  Company Number: AT-MERCK-0410AUT00029

PATIENT
  Age: 83 Year
  Sex: Female

DRUGS (2)
  1. VIOXX [Suspect]
     Indication: RHEUMATOID ARTHRITIS
     Route: 048
     Dates: start: 20020101
  2. DIURETIC (UNSPECIFIED) [Concomitant]
     Indication: OEDEMA PERIPHERAL
     Route: 065
     Dates: start: 20040101, end: 20040101

REACTIONS (2)
  - CEREBROVASCULAR ACCIDENT [None]
  - OEDEMA PERIPHERAL [None]
